FAERS Safety Report 11449194 (Version 1)
Quarter: 2015Q3

REPORT INFORMATION
  Report Type: Spontaneous
  Country: US (occurrence: US)
  Receive Date: 20150902
  Receipt Date: 20150902
  Transmission Date: 20151125
  Serious: No
  Sender: FDA-Public Use
  Company Number: US-B.I. PHARMACEUTICALS,INC./RIDGEFIELD-2015-BI-46138BP

PATIENT
  Age: 60 Year
  Sex: Male
  Weight: 61 kg

DRUGS (4)
  1. SPIRIVA [Suspect]
     Active Substance: TIOTROPIUM BROMIDE MONOHYDRATE
     Indication: CHRONIC OBSTRUCTIVE PULMONARY DISEASE
     Dosage: 18 MCG
     Route: 055
     Dates: start: 2010
  2. AMLODIPINE/BENAZAPRIL [Concomitant]
     Indication: HYPERTENSION
     Dosage: STRENGTH: 10/20 MG; DAILY DOSE: 10/20 MG
     Route: 048
  3. SYMBICORT [Concomitant]
     Active Substance: BUDESONIDE\FORMOTEROL FUMARATE DIHYDRATE
     Indication: CHRONIC OBSTRUCTIVE PULMONARY DISEASE
     Dosage: STRENGTH: 160/4.5 MCG; DAILY DOSE: 320/9 MCG
     Route: 055
  4. ALBUTEROL SULFATE. [Concomitant]
     Active Substance: ALBUTEROL SULFATE
     Indication: CHRONIC OBSTRUCTIVE PULMONARY DISEASE
     Dosage: STRENGTH: 2.5 MG/3ML;
     Route: 055

REACTIONS (16)
  - Productive cough [Not Recovered/Not Resolved]
  - Hyperhidrosis [Recovered/Resolved]
  - Fatigue [Not Recovered/Not Resolved]
  - Cough [Not Recovered/Not Resolved]
  - Insomnia [Recovered/Resolved]
  - Heart rate increased [Recovered/Resolved]
  - Speech disorder [Recovered/Resolved]
  - Chronic obstructive pulmonary disease [Recovered/Resolved]
  - Body temperature increased [Recovered/Resolved]
  - Weight decreased [Not Recovered/Not Resolved]
  - Lung infection [Not Recovered/Not Resolved]
  - Dyspnoea [Recovered/Resolved]
  - Dyspnoea [Not Recovered/Not Resolved]
  - Insomnia [Recovered/Resolved]
  - Decreased appetite [Recovered/Resolved]
  - Urinary incontinence [Recovered/Resolved]

NARRATIVE: CASE EVENT DATE: 2010
